FAERS Safety Report 7134374-8 (Version None)
Quarter: 2010Q4

REPORT INFORMATION
  Report Type: 
  Country: None (occurrence: None)
  Receive Date: 20101130
  Receipt Date: 20101130
  Transmission Date: 20110411
  Serious: No
  Sender: FDA-Public Use
  Company Number: None

PATIENT
  Age: 37 Year
  Sex: Female
  Weight: 70.3075 kg

DRUGS (12)
  1. CYMBALTA [Suspect]
     Indication: FIBROMYALGIA
     Dosage: 60 MG DAILY PO
     Route: 048
     Dates: start: 20100714, end: 20101119
  2. COUMADIN [Concomitant]
  3. MEDROL [Concomitant]
  4. PLAQUENIL [Concomitant]
  5. ESTRACE [Concomitant]
  6. ZANAFLEX [Concomitant]
  7. ELAVIL [Concomitant]
  8. LYRICA [Concomitant]
  9. PRILOSEC [Concomitant]
  10. MIRALEX [Concomitant]
  11. CITRICAL +D [Concomitant]
  12. VITAMIN B COMPLEX CAP [Concomitant]

REACTIONS (1)
  - DRUG WITHDRAWAL SYNDROME [None]
